FAERS Safety Report 9383562 (Version 4)
Quarter: 2013Q3

REPORT INFORMATION
  Report Type: Spontaneous
  Country: US (occurrence: US)
  Receive Date: 20130704
  Receipt Date: 20130916
  Transmission Date: 20140515
  Serious: Yes (Death, Hospitalization)
  Sender: FDA-Public Use
  Company Number: US-JNJFOC-20130615691

PATIENT
  Age: 65 Year
  Sex: Male
  Weight: 81.65 kg

DRUGS (2)
  1. ZYTIGA [Suspect]
     Indication: PROSTATE CANCER METASTATIC
     Dosage: 250 MG X 4??STARTED ON 17-JUN-2013 OR 18-JUN-2013 USED FOR 2 DAYS
     Route: 048
     Dates: start: 201306
  2. AMBIEN [Concomitant]
     Route: 065

REACTIONS (2)
  - Death [Fatal]
  - Pain [Unknown]
